FAERS Safety Report 18164405 (Version 1)
Quarter: 2020Q3

REPORT INFORMATION
  Report Type: Spontaneous
  Country: GB (occurrence: GB)
  Receive Date: 20200818
  Receipt Date: 20200818
  Transmission Date: 20201103
  Serious: Yes (Other)
  Sender: FDA-Public Use
  Company Number: GB-PFIZER INC-2020314745

PATIENT
  Age: 59 Year
  Sex: Male

DRUGS (3)
  1. DEXAMETHASONE SODIUM PHOSPHATE. [Suspect]
     Active Substance: DEXAMETHASONE SODIUM PHOSPHATE
     Dosage: UNK
  2. AXITINIB [Suspect]
     Active Substance: AXITINIB
     Dosage: FULL DOSE
     Dates: start: 202001
  3. AVELUMAB [Suspect]
     Active Substance: AVELUMAB
     Dosage: FULL DOSE
     Dates: start: 202001

REACTIONS (6)
  - Blood pressure decreased [Unknown]
  - Back pain [Unknown]
  - Chills [Unknown]
  - Fatigue [Unknown]
  - Mucosal inflammation [Unknown]
  - Hypertension [Unknown]
